FAERS Safety Report 8034570-1 (Version None)
Quarter: 2012Q1

REPORT INFORMATION
  Report Type: 
  Country: None (occurrence: None)
  Receive Date: 20120110
  Receipt Date: 20120103
  Transmission Date: 20120608
  Serious: Yes (Other)
  Sender: FDA-Public Use
  Company Number: IT-GILEAD-2012-0048775

PATIENT
  Sex: Male

DRUGS (6)
  1. TRUVADA [Suspect]
     Indication: HIV INFECTION
     Dosage: 1 DF, QD
     Route: 048
     Dates: start: 20111207, end: 20111209
  2. COUMADIN [Concomitant]
     Indication: THROMBOSIS PROPHYLAXIS
     Dosage: 1 DF, UNK
     Route: 048
  3. BENADON [Concomitant]
     Indication: VITAMIN B6 DEFICIENCY
     Dosage: 300 MG, UNK
     Route: 048
  4. PREZISTA [Suspect]
     Indication: HIV INFECTION
     Dosage: 800 MG, QD
     Route: 048
     Dates: start: 20111207, end: 20111209
  5. FOLINA                             /00024201/ [Concomitant]
     Indication: ANAEMIA FOLATE DEFICIENCY
     Dosage: 5 MG, UNK
     Route: 048
  6. NORVIR [Suspect]
     Indication: HIV INFECTION
     Dosage: 100 MG, QD
     Route: 048
     Dates: start: 20111207, end: 20111209

REACTIONS (4)
  - INSOMNIA [None]
  - ABDOMINAL PAIN [None]
  - PYREXIA [None]
  - OCCIPITAL NEURALGIA [None]
